FAERS Safety Report 13789897 (Version 1)
Quarter: 2017Q3

REPORT INFORMATION
  Report Type: Other
  Country: GB (occurrence: GB)
  Receive Date: 20170725
  Receipt Date: 20170725
  Transmission Date: 20171127
  Serious: Yes (Other)
  Sender: FDA-Public Use
  Company Number: GB-TAKEDA-2017TUS005154

PATIENT
  Age: 63 Year
  Sex: Female
  Weight: 62 kg

DRUGS (14)
  1. DOUBLEBASE [Concomitant]
     Active Substance: ISOPROPYL MYRISTATE\PARAFFIN
     Dosage: UNK, QID
     Route: 065
     Dates: start: 20161101
  2. INDAPAMIDE. [Concomitant]
     Active Substance: INDAPAMIDE
     Dosage: UNK, QD
     Route: 065
     Dates: start: 20161101, end: 20170214
  3. PARACETAMOL [Concomitant]
     Active Substance: ACETAMINOPHEN
     Dosage: UNK, QID
     Route: 065
     Dates: start: 20160308
  4. DOXAZOSIN [Concomitant]
     Active Substance: DOXAZOSIN\DOXAZOSIN MESYLATE
     Dosage: UNK, QD
     Route: 065
     Dates: start: 20161101
  5. COLCHICINE. [Concomitant]
     Active Substance: COLCHICINE
     Dosage: UNK
     Route: 065
     Dates: start: 20160603
  6. LOSARTAN. [Concomitant]
     Active Substance: LOSARTAN
     Dosage: UNK, QD
     Route: 065
     Dates: start: 20161101
  7. PREDNISOLONE. [Concomitant]
     Active Substance: PREDNISOLONE
     Dosage: UNK
     Route: 065
     Dates: start: 20160427
  8. MIRTAZAPINE. [Concomitant]
     Active Substance: MIRTAZAPINE
     Dosage: UNK, QD
     Route: 065
     Dates: start: 20161101
  9. LANSOPRAZOLE. [Concomitant]
     Active Substance: LANSOPRAZOLE
     Dosage: UNK, QD
     Route: 065
     Dates: start: 20161101
  10. ATORVASTATIN [Concomitant]
     Active Substance: ATORVASTATIN
     Dosage: UNK, QD
     Route: 065
     Dates: start: 20161101
  11. SERTRALINE [Concomitant]
     Active Substance: SERTRALINE HYDROCHLORIDE
     Dosage: UNK, QD
     Route: 065
     Dates: start: 20161101
  12. FEBUXOSTAT. [Suspect]
     Active Substance: FEBUXOSTAT
     Indication: GOUT
     Dosage: UNK
     Route: 065
  13. CALCITRIOL. [Concomitant]
     Active Substance: CALCITRIOL
     Dosage: UNK, QD
     Route: 065
     Dates: start: 20161101
  14. DOMPERIDONE [Concomitant]
     Active Substance: DOMPERIDONE
     Dosage: UNK, TID
     Route: 065
     Dates: start: 20161219, end: 20161229

REACTIONS (2)
  - Headache [Recovered/Resolved]
  - Rash erythematous [Recovered/Resolved]

NARRATIVE: CASE EVENT DATE: 20161101
